FAERS Safety Report 25680521 (Version 1)
Quarter: 2025Q3

REPORT INFORMATION
  Report Type: Spontaneous
  Country: CA (occurrence: CA)
  Receive Date: 20250814
  Receipt Date: 20250814
  Transmission Date: 20251021
  Serious: Yes (Other)
  Sender: PFIZER
  Company Number: CA-PFIZER INC-202500162862

PATIENT
  Age: 74 Year
  Sex: Male

DRUGS (4)
  1. ABRILADA [Suspect]
     Active Substance: ADALIMUMAB-AFZB
     Indication: Colitis ulcerative
     Dosage: 40 MG, 1 EVERY 1 WEEKS
  2. ABRILADA [Suspect]
     Active Substance: ADALIMUMAB-AFZB
  3. BRUKINSA [Suspect]
     Active Substance: ZANUBRUTINIB
     Indication: Myelodysplastic syndrome
  4. BRUKINSA [Suspect]
     Active Substance: ZANUBRUTINIB
     Indication: Lymphoplasmacytoid lymphoma/immunocytoma

REACTIONS (4)
  - Faecal calprotectin increased [Unknown]
  - Fatigue [Unknown]
  - Haemoglobin decreased [Unknown]
  - Off label use [Unknown]
